FAERS Safety Report 6918759-8 (Version None)
Quarter: 2010Q3

REPORT INFORMATION
  Report Type: 
  Country: None (occurrence: None)
  Receive Date: 20100811
  Receipt Date: 20100804
  Transmission Date: 20110219
  Serious: Yes (Hospitalization)
  Sender: FDA-Public Use
  Company Number: JP-ASTRAZENECA-2010SE19026

PATIENT
  Age: 10429 Day
  Sex: Male
  Weight: 65 kg

DRUGS (8)
  1. CARBOCAIN [Suspect]
     Indication: EPIDURAL ANAESTHESIA
     Route: 008
     Dates: start: 20100422, end: 20100422
  2. CEFAMEZIN ALPHA [Suspect]
     Indication: INFECTION PROPHYLAXIS
     Route: 041
     Dates: start: 20100422, end: 20100422
  3. XYLOCAINE [Concomitant]
     Indication: ANAESTHESIA PROCEDURE
     Route: 042
     Dates: start: 20100422, end: 20100422
  4. 1% DIPRIVAN [Concomitant]
     Indication: ANAESTHESIA PROCEDURE
     Route: 042
     Dates: start: 20100422, end: 20100422
  5. FENTANYL [Concomitant]
     Indication: ANAESTHESIA PROCEDURE
     Route: 042
     Dates: start: 20100422, end: 20100422
  6. ATROPINE SULFATE [Concomitant]
     Route: 065
     Dates: start: 20100422, end: 20100422
  7. SOLACET F [Concomitant]
     Route: 042
     Dates: start: 20100422, end: 20100422
  8. PHYSIO 140 [Concomitant]
     Route: 042
     Dates: start: 20100422, end: 20100422

REACTIONS (1)
  - ANAPHYLACTIC SHOCK [None]
